FAERS Safety Report 26087040 (Version 1)
Quarter: 2025Q4

REPORT INFORMATION
  Report Type: Spontaneous
  Country: EU (occurrence: EU)
  Receive Date: 20251125
  Receipt Date: 20251125
  Transmission Date: 20260117
  Serious: Yes (Other)
  Sender: RANBAXY
  Company Number: EU-LRB-01079797

PATIENT
  Age: 74 Year
  Sex: Male
  Weight: 70 kg

DRUGS (1)
  1. TAMSULOSIN [Suspect]
     Active Substance: TAMSULOSIN
     Indication: Micturition disorder
     Dosage: 0.4 MILLIGRAM, DAILY, 1X PER DAY
     Route: 048
     Dates: start: 20250415, end: 20250603

REACTIONS (1)
  - Retinal detachment [Not Recovered/Not Resolved]
